FAERS Safety Report 9564459 (Version 1)
Quarter: 2013Q3

REPORT INFORMATION
  Report Type: Spontaneous
  Country: US (occurrence: US)
  Receive Date: 20130930
  Receipt Date: 20130930
  Transmission Date: 20140515
  Serious: Yes (Hospitalization)
  Sender: FDA-Public Use
  Company Number: US-ROCHE-1281347

PATIENT
  Age: 50 Year
  Sex: Male

DRUGS (2)
  1. AVASTIN [Suspect]
     Indication: COLORECTAL CANCER
     Dosage: MOST RECENT DOSE ON 24 JUL 2013.
     Route: 065
  2. XELODA [Suspect]
     Indication: COLORECTAL CANCER
     Route: 065

REACTIONS (5)
  - Haemoptysis [Unknown]
  - Thrombosis [Unknown]
  - Blood urine present [Unknown]
  - Blood pressure increased [Recovering/Resolving]
  - Protein urine present [Not Recovered/Not Resolved]
